FAERS Safety Report 25797511 (Version 1)
Quarter: 2025Q3

REPORT INFORMATION
  Report Type: Spontaneous
  Country: GB (occurrence: GB)
  Receive Date: 20250912
  Receipt Date: 20250912
  Transmission Date: 20251020
  Serious: Yes (Other)
  Sender: Karo Pharma
  Company Number: GB-Karo Pharma-2184414

PATIENT
  Age: 52 Year
  Sex: Male
  Weight: 70 kg

DRUGS (1)
  1. LAMISIL [Suspect]
     Active Substance: TERBINAFINE HYDROCHLORIDE
     Indication: Product used for unknown indication
     Dates: start: 20250825, end: 20250830

REACTIONS (4)
  - Erythema [Recovering/Resolving]
  - Wound [Recovering/Resolving]
  - Skin exfoliation [Recovering/Resolving]
  - Blister [Recovering/Resolving]

NARRATIVE: CASE EVENT DATE: 20250829
